FAERS Safety Report 13956167 (Version 2)
Quarter: 2018Q1

REPORT INFORMATION
  Report Type: Report from Study
  Country: None (occurrence: US)
  Receive Date: 20170911
  Receipt Date: 20180209
  Transmission Date: 20180508
  Serious: Yes (Other)
  Sender: FDA-Public Use
  Company Number: US-ABBVIE-17K-163-1924914-00

PATIENT
  Age: 65 Year
  Sex: Female

DRUGS (6)
  1. HUMIRA [Suspect]
     Active Substance: ADALIMUMAB
     Route: 058
     Dates: start: 20170908, end: 20170908
  2. LEVOTHYROXINE. [Concomitant]
     Active Substance: LEVOTHYROXINE
     Indication: PRODUCT USED FOR UNKNOWN INDICATION
  3. HUMIRA [Suspect]
     Active Substance: ADALIMUMAB
     Indication: PSORIATIC ARTHROPATHY
     Route: 058
     Dates: start: 2007, end: 201706
  4. TIZANIDINE. [Concomitant]
     Active Substance: TIZANIDINE
     Indication: PRODUCT USED FOR UNKNOWN INDICATION
  5. MECLIZINE [Concomitant]
     Active Substance: MECLIZINE HYDROCHLORIDE
     Indication: PRODUCT USED FOR UNKNOWN INDICATION
  6. ATENOLOL. [Concomitant]
     Active Substance: ATENOLOL
     Indication: PRODUCT USED FOR UNKNOWN INDICATION

REACTIONS (18)
  - Dizziness [Recovered/Resolved]
  - Chills [Recovered/Resolved]
  - Clostridium difficile infection [Not Recovered/Not Resolved]
  - Amnesia [Not Recovered/Not Resolved]
  - Intervertebral discitis [Unknown]
  - Sinus pain [Recovered/Resolved]
  - Osteoarthritis [Not Recovered/Not Resolved]
  - Septic shock [Recovering/Resolving]
  - Sepsis [Unknown]
  - Stomatitis [Recovered/Resolved]
  - Dry throat [Recovered/Resolved]
  - Asthenia [Not Recovered/Not Resolved]
  - Insomnia [Unknown]
  - Gait disturbance [Not Recovered/Not Resolved]
  - Dysphonia [Recovered/Resolved]
  - Impaired healing [Recovered/Resolved]
  - Cartilage atrophy [Recovering/Resolving]
  - Joint swelling [Recovered/Resolved]

NARRATIVE: CASE EVENT DATE: 2015
